FAERS Safety Report 23296852 (Version 5)
Quarter: 2023Q4

REPORT INFORMATION
  Report Type: Spontaneous
  Country: US (occurrence: US)
  Receive Date: 20231214
  Receipt Date: 20231226
  Transmission Date: 20240109
  Serious: Yes (Hospitalization, Other)
  Sender: FDA-Public Use
  Company Number: US-PFIZER INC-PV202300199112

PATIENT
  Age: 20 Year
  Sex: Female

DRUGS (14)
  1. EPINEPHRINE [Suspect]
     Active Substance: EPINEPHRINE
     Indication: Hypotension
     Dosage: 1 UG/MIN (INFUSION)
  2. EPINEPHRINE [Suspect]
     Active Substance: EPINEPHRINE
     Indication: Paroxysmal sympathetic hyperactivity
     Dosage: 0.5 UG/MIN (SLOWLY TITRATED)
  3. EPINEPHRINE [Suspect]
     Active Substance: EPINEPHRINE
     Dosage: 1 UG/MIN (EVERY 2 MINUTES THE DOSE WAS INCREASED)
  4. EPINEPHRINE [Suspect]
     Active Substance: EPINEPHRINE
     Dosage: 2 UG/MIN (EVERY 2 MINUTES THE DOSE WAS INCREASED)
  5. EPINEPHRINE [Suspect]
     Active Substance: EPINEPHRINE
     Dosage: 3 UG/MIN (EVERY 2 MINUTES THE DOSE WAS INCREASED)
  6. EPINEPHRINE [Suspect]
     Active Substance: EPINEPHRINE
     Dosage: 4 UG/MIN (EVERY 2 MINUTES THE DOSE WAS INCREASED)
  7. EPINEPHRINE [Suspect]
     Active Substance: EPINEPHRINE
     Dosage: 6 UG/MIN
  8. EPINEPHRINE [Suspect]
     Active Substance: EPINEPHRINE
     Dosage: 1 UG/MIN INFUSIONS
  9. EPINEPHRINE [Suspect]
     Active Substance: EPINEPHRINE
     Dosage: 2 UG/MIN (LOW-DOSE)
  10. NOREPINEPHRINE BITARTRATE [Suspect]
     Active Substance: NOREPINEPHRINE BITARTRATE
     Indication: Paroxysmal sympathetic hyperactivity
     Dosage: 4 UG/MIN
  11. NOREPINEPHRINE BITARTRATE [Suspect]
     Active Substance: NOREPINEPHRINE BITARTRATE
     Indication: Hypotension
     Dosage: 4 UG/MIN (RECHALLENGED)
  12. ATROPINE SULFATE [Concomitant]
     Active Substance: ATROPINE SULFATE
     Indication: Paroxysmal sympathetic hyperactivity
     Dosage: 1 MG
  13. ATROPINE SULFATE [Concomitant]
     Active Substance: ATROPINE SULFATE
     Indication: Hypotension
     Dosage: 1 MG
  14. ATROPINE SULFATE [Concomitant]
     Active Substance: ATROPINE SULFATE
     Dosage: 0.5 MG

REACTIONS (1)
  - Bradycardia [Recovering/Resolving]
